FAERS Safety Report 6642285-7 (Version None)
Quarter: 2010Q1

REPORT INFORMATION
  Report Type: 
  Country: None (occurrence: None)
  Receive Date: 20100319
  Receipt Date: 20100312
  Transmission Date: 20100710
  Serious: Yes (Hospitalization)
  Sender: FDA-Public Use
  Company Number: US-BAYER-201016564NA

PATIENT
  Age: 78 Year
  Sex: Male

DRUGS (1)
  1. AVELOX [Suspect]
     Indication: PROSTATITIS

REACTIONS (1)
  - HYPOGLYCAEMIA [None]
